FAERS Safety Report 26130306 (Version 1)
Quarter: 2025Q4

REPORT INFORMATION
  Report Type: Spontaneous
  Country: US (occurrence: None)
  Receive Date: 20251205
  Receipt Date: 20251205
  Transmission Date: 20260117
  Serious: Yes (Other)
  Sender: FDA-CTU
  Company Number: None

PATIENT
  Sex: Female
  Weight: 67.5 kg

DRUGS (2)
  1. OLANZAPINE [Suspect]
     Active Substance: OLANZAPINE
  2. RISPERIDONE [Suspect]
     Active Substance: RISPERIDONE
     Dosage: OTHER QUANTITY : 1 TABLET(S);?FREQUENCY : AT BEDTIME;
     Route: 048

REACTIONS (12)
  - Seizure [None]
  - Blood glucose fluctuation [None]
  - Emotional disorder [None]
  - Depersonalisation/derealisation disorder [None]
  - Nightmare [None]
  - Daydreaming [None]
  - Myalgia [None]
  - Bone pain [None]
  - Impulsive behaviour [None]
  - Communication disorder [None]
  - Reading disorder [None]
  - Disturbance in attention [None]
